FAERS Safety Report 12984218 (Version 3)
Quarter: 2018Q4

REPORT INFORMATION
  Report Type: Spontaneous
  Country: US (occurrence: US)
  Receive Date: 20161129
  Receipt Date: 20181212
  Transmission Date: 20190204
  Serious: Yes (Hospitalization, Disabling)
  Sender: FDA-Public Use
  Company Number: US-ENDO PHARMACEUTICALS INC.-2016-006543

PATIENT
  Age: 64 Year
  Sex: Male
  Weight: 108.84 kg

DRUGS (16)
  1. ANDROGEL [Suspect]
     Active Substance: TESTOSTERONE
     Dosage: UNK, UNK
     Route: 065
     Dates: start: 20121004, end: 20130730
  2. ANDROGEL [Suspect]
     Active Substance: TESTOSTERONE
     Indication: ANDROGEN REPLACEMENT THERAPY
     Dosage: UNK UNKNOWN, DAILY
     Route: 065
     Dates: start: 20110503, end: 20120111
  3. PANTOPRAZOLE [Concomitant]
     Active Substance: PANTOPRAZOLE
     Indication: GASTROOESOPHAGEAL REFLUX DISEASE
     Dosage: UNK UNKNOWN, UNKNOWN
     Route: 065
     Dates: start: 1996
  4. METFORMIN [Concomitant]
     Active Substance: METFORMIN HYDROCHLORIDE
     Indication: TYPE 2 DIABETES MELLITUS
     Dosage: UNK UNKNOWN, UNKNOWN
     Route: 065
  5. ANDROGEL [Suspect]
     Active Substance: TESTOSTERONE
     Dosage: UNK, UNK
     Route: 065
     Dates: start: 20110104, end: 20110306
  6. METAMUCIL [Concomitant]
     Active Substance: PLANTAGO SEED
     Indication: CONSTIPATION
     Dosage: UNK UNKNOWN, UNKNOWN
     Route: 065
     Dates: start: 2006
  7. TESTIM [Suspect]
     Active Substance: TESTOSTERONE
     Indication: ANDROGEN REPLACEMENT THERAPY
     Dosage: 50 MG, DAILY
     Route: 062
     Dates: start: 20110228, end: 20110330
  8. ASPIRIN. [Concomitant]
     Active Substance: ASPIRIN
     Indication: PRODUCT USED FOR UNKNOWN INDICATION
     Dosage: UNK UNKNOWN, UNKNOWN
     Route: 065
     Dates: start: 1996
  9. ZOLPIDEM [Concomitant]
     Active Substance: ZOLPIDEM\ZOLPIDEM TARTRATE
     Indication: SLEEP DISORDER
     Dosage: UNK UNKNOWN, UNKNOWN
     Route: 065
     Dates: start: 2004
  10. FINASTERIDE. [Concomitant]
     Active Substance: FINASTERIDE
     Indication: BENIGN PROSTATIC HYPERPLASIA
     Dosage: UNK UNKNOWN, UNKNOWN
     Route: 065
     Dates: start: 2006
  11. MIRALAX [Concomitant]
     Active Substance: POLYETHYLENE GLYCOL 3350
     Indication: CONSTIPATION
     Dosage: UNK UNKNOWN, UNKNOWN
     Route: 065
     Dates: start: 2006
  12. SIMCOR [Concomitant]
     Active Substance: NIACIN\SIMVASTATIN
     Indication: HYPERLIPIDAEMIA
     Dosage: UNK UNKNOWN, UNKNOWN
     Route: 065
  13. FENOFIBRATE. [Concomitant]
     Active Substance: FENOFIBRATE
     Indication: HYPERLIPIDAEMIA
     Dosage: UNK UNKNOWN, UNKNOWN
     Route: 065
     Dates: start: 2000
  14. GLUCOSAMINE [Concomitant]
     Active Substance: GLUCOSAMINE
     Indication: PAIN
     Dosage: UNK UNKNOWN, UNKNOWN
     Route: 065
     Dates: start: 2001
  15. BUPROPION. [Concomitant]
     Active Substance: BUPROPION
     Indication: DEPRESSION
     Dosage: UNK UNKNOWN, UNKNOWN
     Route: 065
     Dates: start: 2011
  16. LISINOPRIL/HCTZ [Concomitant]
     Active Substance: HYDROCHLOROTHIAZIDE\LISINOPRIL
     Indication: HYPERTENSION
     Dosage: UNK UNKNOWN, UNKNOWN
     Route: 065

REACTIONS (1)
  - Pulmonary embolism [Not Recovered/Not Resolved]

NARRATIVE: CASE EVENT DATE: 20110329
